FAERS Safety Report 18674855 (Version 9)
Quarter: 2022Q2

REPORT INFORMATION
  Report Type: Report from Study
  Country: BR (occurrence: BR)
  Receive Date: 20201229
  Receipt Date: 20220429
  Transmission Date: 20220720
  Serious: Yes (Other)
  Sender: FDA-Public Use
  Company Number: NVSC2020BR319790

PATIENT
  Sex: Male
  Weight: 80 kg

DRUGS (5)
  1. KISQALI [Suspect]
     Active Substance: RIBOCICLIB
     Indication: Breast cancer
     Dosage: 3 DOSAGE FORM, QD (FOR 21 DAYS )
     Route: 048
     Dates: start: 2020
  2. KISQALI [Suspect]
     Active Substance: RIBOCICLIB
     Dosage: UNK (EVERY 28/28 DAY )
     Route: 048
  3. KISQALI [Suspect]
     Active Substance: RIBOCICLIB
     Dosage: 3 DOSAGE FORM, QD (FOR 21 DAYS )
     Route: 065
     Dates: start: 20210124
  4. TAMOXIFEN [Suspect]
     Active Substance: TAMOXIFEN
     Indication: Breast cancer
     Dosage: UNK
     Route: 065
     Dates: start: 2017
  5. TAMOXIFEN [Suspect]
     Active Substance: TAMOXIFEN
     Dosage: UNK
     Route: 065
     Dates: start: 201805

REACTIONS (10)
  - Metastases to lung [Recovering/Resolving]
  - Metastases to bone [Recovering/Resolving]
  - Breast cancer recurrent [Recovering/Resolving]
  - Facial paralysis [Unknown]
  - Metastasis [Recovering/Resolving]
  - Craniocerebral injury [Unknown]
  - Osteonecrosis of jaw [Unknown]
  - Emotional disorder [Recovering/Resolving]
  - Road traffic accident [Unknown]
  - Toothache [Unknown]

NARRATIVE: CASE EVENT DATE: 20170101
